FAERS Safety Report 10050961 (Version 2)
Quarter: 2014Q2

REPORT INFORMATION
  Report Type: Spontaneous
  Country: GB (occurrence: GB)
  Receive Date: 20140401
  Receipt Date: 20140408
  Transmission Date: 20141212
  Serious: Yes (Other)
  Sender: FDA-Public Use
  Company Number: GB-MERCK-1403GBR012708

PATIENT
  Age: 53 Year
  Sex: Male
  Weight: 80 kg

DRUGS (1)
  1. ISENTRESS [Suspect]
     Indication: HIV ANTIBODY POSITIVE
     Dosage: 400 MG, 2/1 DAY
     Route: 048
     Dates: start: 20140312, end: 20140315

REACTIONS (4)
  - Affect lability [Not Recovered/Not Resolved]
  - Depression [Not Recovered/Not Resolved]
  - Confusional state [Not Recovered/Not Resolved]
  - Insomnia [Not Recovered/Not Resolved]
